FAERS Safety Report 16938343 (Version 1)
Quarter: 2019Q4

REPORT INFORMATION
  Report Type: Spontaneous
  Country: US (occurrence: US)
  Receive Date: 20190828
  Receipt Date: 20190828
  Transmission Date: 20200122
  Serious: No
  Sender: FDA-Public Use
  Company Number: None

PATIENT
  Age: 49 Year
  Sex: Female

DRUGS (1)
  1. TASIGNA [Suspect]
     Active Substance: NILOTINIB
     Route: 048
     Dates: start: 201807

REACTIONS (6)
  - White blood cell count decreased [None]
  - Arthralgia [None]
  - Oedema peripheral [None]
  - Fatigue [None]
  - Red blood cell count decreased [None]
  - Myalgia [None]

NARRATIVE: CASE EVENT DATE: 20190828
